FAERS Safety Report 6880970-2 (Version None)
Quarter: 2010Q2

REPORT INFORMATION
  Report Type: 
  Country: None (occurrence: None)
  Receive Date: 20100630
  Receipt Date: 20100330
  Transmission Date: 20101027
  Serious: Yes (Other)
  Sender: FDA-Public Use
  Company Number: 2010040442

PATIENT
  Age: 56 Year
  Sex: Female

DRUGS (2)
  1. ZITHROMAX [Suspect]
  2. MINOCIN [Suspect]

REACTIONS (1)
  - HYPERSENSITIVITY [None]
